FAERS Safety Report 4537507-2 (Version None)
Quarter: 2005Q1

REPORT INFORMATION
  Report Type: 
  Country: None (occurrence: None)
  Receive Date: 20041216
  Receipt Date: 20031022
  Transmission Date: 20050727
  Serious: Yes (Hospitalization)
  Sender: FDA-Public Use
  Company Number: HQWYE454023OCT03

PATIENT
  Age: 34 Year
  Sex: Female
  Weight: 69.01 kg

DRUGS (3)
  1. EFFEXOR XR [Suspect]
     Indication: DEPRESSION
     Dosage: 225 MG 1X PER 1 DAY, ORAL
     Route: 048
     Dates: start: 20020401, end: 20030801
  2. TRAZODONE (TRAZODONE) [Concomitant]
  3. SEROQUEL [Concomitant]

REACTIONS (5)
  - CHOLECYSTITIS [None]
  - CONSTIPATION [None]
  - HAEMATOCHEZIA [None]
  - PANCREATITIS [None]
  - STOOL ANALYSIS ABNORMAL [None]
